FAERS Safety Report 7412576-0 (Version None)
Quarter: 2011Q2

REPORT INFORMATION
  Report Type: 
  Country: None (occurrence: None)
  Receive Date: 20110413
  Receipt Date: 20110405
  Transmission Date: 20111010
  Serious: Yes (Death, Other)
  Sender: FDA-Public Use
  Company Number: JP-JNJFOC-20110207433

PATIENT
  Sex: Female

DRUGS (46)
  1. DUROTEP MT [Suspect]
     Route: 062
  2. LYRICA [Suspect]
     Indication: PAIN
     Route: 048
  3. ANTIDIABETIC DRUG [Suspect]
     Indication: PRODUCT USED FOR UNKNOWN INDICATION
     Route: 065
  4. FELBINAC [Concomitant]
     Indication: PERIARTHRITIS
     Route: 065
  5. FELBINAC [Concomitant]
     Route: 065
  6. FELBINAC [Concomitant]
     Route: 065
  7. PRORENAL [Concomitant]
     Indication: LUMBAR SPINAL STENOSIS
     Route: 048
  8. DUROTEP MT [Suspect]
     Route: 062
  9. LYRICA [Suspect]
     Indication: NEUROPATHY PERIPHERAL
     Route: 048
  10. LYRICA [Suspect]
     Route: 048
  11. LOXONIN [Suspect]
     Indication: PAIN
     Route: 065
  12. ADEFURONIC [Concomitant]
     Indication: RHEUMATOID ARTHRITIS
     Route: 054
  13. ANFLAVATE [Concomitant]
     Indication: SPINAL OSTEOARTHRITIS
     Route: 065
  14. ANFLAVATE [Concomitant]
     Indication: RHEUMATOID ARTHRITIS
     Route: 065
  15. FELBINAC [Concomitant]
     Route: 065
  16. FELBINAC [Concomitant]
     Route: 065
  17. DUROTEP MT [Suspect]
     Indication: PAIN
     Route: 062
  18. RHEUMATREX [Suspect]
     Indication: RHEUMATOID ARTHRITIS
     Route: 048
  19. ADEFURONIC [Concomitant]
     Indication: OSTEOARTHRITIS
     Route: 054
  20. ANFLAVATE [Concomitant]
     Indication: PERIARTHRITIS
     Route: 065
  21. FELBINAC [Concomitant]
     Indication: SPINAL OSTEOARTHRITIS
     Route: 065
  22. PRIMPERAN TAB [Concomitant]
     Route: 048
  23. DUROTEP MT [Suspect]
     Route: 062
  24. NOVAMIN [Suspect]
     Indication: PRODUCT USED FOR UNKNOWN INDICATION
     Route: 065
  25. SUMILU [Concomitant]
     Indication: RHEUMATOID ARTHRITIS
     Route: 062
  26. ETIZOLAM [Concomitant]
     Indication: ANXIETY DISORDER
     Route: 048
  27. NOLPORT [Concomitant]
     Route: 065
  28. LYRICA [Suspect]
     Route: 048
  29. ADEFURONIC [Concomitant]
     Indication: PERIARTHRITIS
     Route: 054
  30. ANFLAVATE [Concomitant]
     Indication: LUMBAR SPINAL STENOSIS
     Route: 065
  31. CILOSTAZOL [Concomitant]
     Indication: ARTERIOSCLEROSIS OBLITERANS
     Route: 048
  32. FELBINAC [Concomitant]
     Indication: RHEUMATOID ARTHRITIS
     Route: 065
  33. SODIUM HYALURONATE [Concomitant]
     Route: 065
  34. CYANOCOBALAMIN [Concomitant]
     Route: 065
  35. SUMILU [Concomitant]
     Indication: PERIARTHRITIS
     Route: 062
  36. SUMILU [Concomitant]
     Indication: SPINAL OSTEOARTHRITIS
     Route: 062
  37. NOVAMIN [Concomitant]
     Route: 048
  38. SODIUM HYALURONATE [Concomitant]
     Route: 065
  39. ELCATONIN [Concomitant]
     Route: 030
  40. DUROTEP MT [Suspect]
     Route: 062
  41. ADEFURONIC [Concomitant]
     Indication: LUMBAR SPINAL STENOSIS
     Route: 054
  42. FELBINAC [Concomitant]
     Indication: LUMBAR SPINAL STENOSIS
     Route: 065
  43. DUROTEP MT [Suspect]
     Route: 062
  44. DEXART [Concomitant]
     Route: 065
  45. SUMILU [Concomitant]
     Indication: LUMBAR SPINAL STENOSIS
     Route: 062
  46. XYLOCAINE [Concomitant]
     Route: 065

REACTIONS (17)
  - ALANINE AMINOTRANSFERASE INCREASED [None]
  - HEADACHE [None]
  - SEPSIS [None]
  - INTERSTITIAL LUNG DISEASE [None]
  - ALTERED STATE OF CONSCIOUSNESS [None]
  - RESPIRATION ABNORMAL [None]
  - OXYGEN SATURATION DECREASED [None]
  - SOMNOLENCE [None]
  - TOXICITY TO VARIOUS AGENTS [None]
  - ABNORMAL BEHAVIOUR [None]
  - CIRCULATORY COLLAPSE [None]
  - CONDITION AGGRAVATED [None]
  - SCIATICA [None]
  - MENTAL IMPAIRMENT [None]
  - NAUSEA [None]
  - ASPARTATE AMINOTRANSFERASE INCREASED [None]
  - BACK PAIN [None]
